FAERS Safety Report 15121674 (Version 1)
Quarter: 2018Q3

REPORT INFORMATION
  Report Type: Spontaneous
  Country: US (occurrence: US)
  Receive Date: 20180709
  Receipt Date: 20180709
  Transmission Date: 20181010
  Serious: No
  Sender: FDA-Public Use
  Company Number: US-MYLANLABS-2018M1043600

PATIENT
  Age: 43 Year
  Sex: Female

DRUGS (1)
  1. XULANE [Suspect]
     Active Substance: ETHINYL ESTRADIOL\NORELGESTROMIN
     Indication: MENSTRUATION IRREGULAR
     Dosage: UNK
     Route: 062

REACTIONS (7)
  - Off label use [Not Recovered/Not Resolved]
  - Menorrhagia [Recovered/Resolved]
  - Product adhesion issue [Not Recovered/Not Resolved]
  - Polymenorrhoea [Not Recovered/Not Resolved]
  - Product quality issue [Unknown]
  - Fatigue [Not Recovered/Not Resolved]
  - Wrong technique in product usage process [Not Recovered/Not Resolved]

NARRATIVE: CASE EVENT DATE: 20180611
